FAERS Safety Report 6348851-0 (Version None)
Quarter: 2009Q3

REPORT INFORMATION
  Report Type: 
  Country: None (occurrence: None)
  Receive Date: 20090911
  Receipt Date: 20090901
  Transmission Date: 20100115
  Serious: Yes (Death)
  Sender: FDA-Public Use
  Company Number: IN-PFIZER INC-2009262952

PATIENT
  Age: 28 Year

DRUGS (2)
  1. MAGNEX [Suspect]
     Indication: HEAD INJURY
     Dosage: 2 G, 2X/DAY
     Route: 042
     Dates: start: 20090823, end: 20090825
  2. GENTAMICIN [Concomitant]
     Route: 042

REACTIONS (1)
  - THROMBOCYTOPENIA [None]
